FAERS Safety Report 7510775-0 (Version None)
Quarter: 2011Q2

REPORT INFORMATION
  Report Type: 
  Country: None (occurrence: None)
  Receive Date: 20110530
  Receipt Date: 20110524
  Transmission Date: 20111010
  Serious: Yes (Life-Threatening)
  Sender: FDA-Public Use
  Company Number: PHHY2011NL44951

PATIENT
  Sex: Male
  Weight: 68 kg

DRUGS (2)
  1. EXELON [Suspect]
     Dosage: 4.6 MG/24 H, 1DD1
     Route: 062
     Dates: start: 20110428, end: 20110511
  2. ACETAMINOPHEN [Concomitant]
     Dosage: 4 DF, UNK

REACTIONS (3)
  - APPARENT DEATH [None]
  - DECREASED APPETITE [None]
  - GENERAL PHYSICAL HEALTH DETERIORATION [None]
